FAERS Safety Report 5290673-6 (Version None)
Quarter: 2007Q2

REPORT INFORMATION
  Report Type: 
  Country: None (occurrence: None)
  Receive Date: 20070405
  Receipt Date: 20070405
  Transmission Date: 20071010
  Serious: Yes (Hospitalization)
  Sender: FDA-Public Use
  Company Number: None

PATIENT
  Age: 54 Year
  Sex: Male

DRUGS (14)
  1. VANCOMYCIN [Suspect]
     Indication: OSTEOMYELITIS
     Dosage: 1 GM IV Q 12?
     Route: 042
     Dates: start: 20061203, end: 20061214
  2. ZOSYN [Suspect]
     Indication: OSTEOMYELITIS
     Dosage: 4.5 GM IV Q 8?
     Route: 042
     Dates: start: 20061203, end: 20061214
  3. POTASSIUM CHLORIDE [Concomitant]
  4. COREG [Concomitant]
  5. ALLOPURINOL [Concomitant]
  6. BUMETANIDE [Concomitant]
  7. LEVOTHYROXINE SODIUM [Concomitant]
  8. ISOSORBIDE [Concomitant]
  9. HUMALOG [Concomitant]
  10. DIGOXIN [Concomitant]
  11. HYDRALAZINE HCL [Concomitant]
  12. LANTUS [Concomitant]
  13. LANSOPRAZOLE [Concomitant]
  14. PRAVASTATIN [Concomitant]

REACTIONS (2)
  - EXFOLIATIVE RASH [None]
  - RASH [None]
